APPROVED DRUG PRODUCT: ACYCLOVIR
Active Ingredient: ACYCLOVIR
Strength: 5%
Dosage Form/Route: CREAM;TOPICAL
Application: A212981 | Product #001
Applicant: CIPLA LTD
Approved: May 2, 2025 | RLD: No | RS: No | Type: DISCN